FAERS Safety Report 8231864-1 (Version None)
Quarter: 2012Q1

REPORT INFORMATION
  Report Type: 
  Country: None (occurrence: None)
  Receive Date: 20120323
  Receipt Date: 20120312
  Transmission Date: 20120608
  Serious: Yes (Hospitalization)
  Sender: FDA-Public Use
  Company Number: US-ROCHE-1049331

PATIENT
  Age: 70 Year
  Sex: Female

DRUGS (13)
  1. CARBOPLATIN [Suspect]
     Indication: UTERINE CANCER
     Route: 042
     Dates: start: 20111014, end: 20120310
  2. LASIX [Concomitant]
     Route: 048
  3. VITAMIN D [Concomitant]
  4. TAXOL [Suspect]
     Indication: UTERINE CANCER
     Route: 042
     Dates: start: 20111014, end: 20120310
  5. METOPROLOL SUCCINATE [Concomitant]
     Route: 048
  6. SIMVASTATIN [Concomitant]
     Route: 048
  7. PEPCID [Concomitant]
  8. HERCEPTIN [Suspect]
     Indication: UTERINE CANCER
     Dates: start: 20111014, end: 20120310
  9. BENADRYL [Concomitant]
  10. POTASSIUM CHLORIDE [Concomitant]
  11. CALCIUM CARBONATE [Concomitant]
  12. ALOXI [Concomitant]
  13. DECADRON [Concomitant]

REACTIONS (4)
  - PRURITUS [None]
  - ERYTHEMA [None]
  - BLOOD PRESSURE INCREASED [None]
  - BACK PAIN [None]
